FAERS Safety Report 4512895-1 (Version None)
Quarter: 2004Q4

REPORT INFORMATION
  Report Type: 
  Country: None (occurrence: None)
  Receive Date: 20041122
  Receipt Date: 20041122
  Transmission Date: 20050328
  Serious: No
  Sender: FDA-Public Use
  Company Number: None

PATIENT

DRUGS (1)
  1. DYAZIDE [Suspect]
     Indication: HYPERTENSION
     Dosage: 1 PO QD
     Route: 048

REACTIONS (3)
  - DRUG EFFECT DECREASED [None]
  - NAUSEA [None]
  - VOMITING [None]
